FAERS Safety Report 7488544-X (Version None)
Quarter: 2011Q2

REPORT INFORMATION
  Report Type: 
  Country: None (occurrence: None)
  Receive Date: 20110518
  Receipt Date: 20110511
  Transmission Date: 20111010
  Serious: Yes (Hospitalization, Disabling)
  Sender: FDA-Public Use
  Company Number: CR-B.I. PHARMACEUTICALS,INC./RIDGEFIELD-2011-MX-00117MX

PATIENT
  Age: 80 Year
  Sex: Female
  Weight: 70 kg

DRUGS (4)
  1. LOVASTATIN [Concomitant]
     Indication: DYSLIPIDAEMIA
     Dosage: 20 MG
     Route: 048
  2. CLOPIDOGREL [Concomitant]
     Dosage: ONE TABLET DAILY
     Route: 048
     Dates: start: 20110301
  3. MICARDIS [Suspect]
     Indication: HYPERTENSION
     Dosage: 80 MG
     Route: 048
     Dates: start: 20110201
  4. MICARDIS [Suspect]
     Indication: DIABETIC NEPHROPATHY

REACTIONS (2)
  - URINARY TRACT INFECTION [None]
  - CEREBRAL INFARCTION [None]
